FAERS Safety Report 7413198-8 (Version None)
Quarter: 2011Q2

REPORT INFORMATION
  Report Type: 
  Country: None (occurrence: None)
  Receive Date: 20110405
  Receipt Date: 20110405
  Transmission Date: 20111010
  Serious: Yes (Death)
  Sender: FDA-Public Use
  Company Number: 2011P1005154

PATIENT
  Age: 38 Year
  Sex: Male

DRUGS (5)
  1. METOPROLOL SUCCINATE [Suspect]
     Dosage: PO
  2. CLONAZEPAM [Suspect]
     Dosage: PO
     Route: 048
  3. CITALOPRAM HYDROBROMIDE [Suspect]
     Dosage: PO
     Route: 048
  4. ANTIFREEZE (ETHYLENE GLYCOL) (NO PREF. NAME) [Suspect]
     Dosage: PO
     Route: 048
  5. HYDROXYZINE [Suspect]
     Dosage: PO
     Route: 048

REACTIONS (1)
  - COMPLETED SUICIDE [None]
